FAERS Safety Report 25892873 (Version 1)
Quarter: 2025Q4

REPORT INFORMATION
  Report Type: Spontaneous
  Country: US (occurrence: US)
  Receive Date: 20251007
  Receipt Date: 20251007
  Transmission Date: 20260117
  Serious: No
  Sender: ELI LILLY AND COMPANY
  Company Number: US-ELI_LILLY_AND_COMPANY-US202510003204

PATIENT
  Age: 60 Year
  Sex: Female

DRUGS (5)
  1. ZEPBOUND [Suspect]
     Active Substance: TIRZEPATIDE
     Indication: Product used for unknown indication
     Dosage: 2.5 MG, UNKNOWN
     Route: 065
     Dates: start: 20250919
  2. PEPCID [Suspect]
     Active Substance: FAMOTIDINE
     Indication: Palpitations
     Dosage: UNK, UNKNOWN
     Route: 065
  3. PEPCID [Suspect]
     Active Substance: FAMOTIDINE
     Indication: Euphoric mood
  4. PEPCID [Suspect]
     Active Substance: FAMOTIDINE
     Indication: Tongue disorder
  5. PEPCID [Suspect]
     Active Substance: FAMOTIDINE
     Indication: Swollen tongue

REACTIONS (5)
  - Eye disorder [Recovered/Resolved]
  - Tongue disorder [Recovered/Resolved]
  - Palpitations [Recovered/Resolved]
  - Euphoric mood [Recovered/Resolved]
  - Swollen tongue [Recovered/Resolved]

NARRATIVE: CASE EVENT DATE: 20250919
